FAERS Safety Report 18532135 (Version 1)
Quarter: 2020Q4

REPORT INFORMATION
  Report Type: Spontaneous
  Country: US (occurrence: US)
  Receive Date: 20201123
  Receipt Date: 20201123
  Transmission Date: 20210114
  Serious: No
  Sender: FDA-Public Use
  Company Number: US-JNJFOC-20201125333

PATIENT
  Sex: Male

DRUGS (13)
  1. METHOTREXATE. [Concomitant]
     Active Substance: METHOTREXATE
  2. TRAMADOL. [Concomitant]
     Active Substance: TRAMADOL
  3. LIPITOR [Concomitant]
     Active Substance: ATORVASTATIN CALCIUM
  4. ALLEGRA [Concomitant]
     Active Substance: FEXOFENADINE HYDROCHLORIDE
  5. ENBREL [Concomitant]
     Active Substance: ETANERCEPT
  6. SIMPONI ARIA [Suspect]
     Active Substance: GOLIMUMAB
     Indication: PRODUCT USED FOR UNKNOWN INDICATION
     Route: 042
  7. NAPROXEN. [Concomitant]
     Active Substance: NAPROXEN
  8. HUMIRA [Concomitant]
     Active Substance: ADALIMUMAB
  9. CIMZIA [Concomitant]
     Active Substance: CERTOLIZUMAB PEGOL
  10. ACTEMRA [Concomitant]
     Active Substance: TOCILIZUMAB
  11. NABUMETONE. [Concomitant]
     Active Substance: NABUMETONE
  12. MELOXICAM. [Concomitant]
     Active Substance: MELOXICAM
  13. XELJANZ [Concomitant]
     Active Substance: TOFACITINIB CITRATE

REACTIONS (1)
  - Drug ineffective [Unknown]
